FAERS Safety Report 20219861 (Version 1)
Quarter: 2021Q4

REPORT INFORMATION
  Report Type: Report from Study
  Country: US (occurrence: US)
  Receive Date: 20211222
  Receipt Date: 20211222
  Transmission Date: 20220303
  Serious: Yes (Disabling)
  Sender: FDA-Public Use
  Company Number: US-SEATTLE GENETICS-2021SGN06562

PATIENT
  Sex: Female

DRUGS (1)
  1. TUCATINIB [Suspect]
     Active Substance: TUCATINIB
     Indication: Malignant nipple neoplasm female
     Route: 065

REACTIONS (6)
  - Musculoskeletal disorder [Unknown]
  - Sleep deficit [Unknown]
  - Dry mouth [Unknown]
  - Constipation [Unknown]
  - Gait disturbance [Unknown]
  - Diarrhoea [Unknown]
